FAERS Safety Report 20541892 (Version 3)
Quarter: 2023Q2

REPORT INFORMATION
  Report Type: Spontaneous
  Country: US (occurrence: US)
  Receive Date: 20220302
  Receipt Date: 20230525
  Transmission Date: 20230722
  Serious: Yes (Other)
  Sender: FDA-Public Use
  Company Number: US-JNJFOC-20211220516

PATIENT
  Age: 45 Year
  Sex: Female

DRUGS (8)
  1. ELMIRON [Suspect]
     Active Substance: PENTOSAN POLYSULFATE SODIUM
     Indication: Cystitis interstitial
     Route: 048
  2. ELMIRON [Suspect]
     Active Substance: PENTOSAN POLYSULFATE SODIUM
     Dosage: 2 TO 3 TIMES A DAY
     Route: 048
     Dates: start: 201902, end: 202004
  3. CELEBREX [Concomitant]
     Active Substance: CELECOXIB
     Indication: Back pain
     Dates: start: 20151012
  4. CELEBREX [Concomitant]
     Active Substance: CELECOXIB
     Indication: Arthralgia
  5. CELEBREX [Concomitant]
     Active Substance: CELECOXIB
     Indication: Greater trochanteric pain syndrome
  6. TOPAMAX [Concomitant]
     Active Substance: TOPIRAMATE
     Indication: Neuralgia
     Dates: start: 201704
  7. AMITRIPTYLINE [Concomitant]
     Active Substance: AMITRIPTYLINE
     Indication: Bladder pain
     Dates: start: 201808
  8. AMITRIPTYLINE [Concomitant]
     Active Substance: AMITRIPTYLINE
     Indication: Cystitis interstitial

REACTIONS (2)
  - Retinal anomaly congenital [Unknown]
  - Off label use [Unknown]

NARRATIVE: CASE EVENT DATE: 20190201
